FAERS Safety Report 5328824-7 (Version None)
Quarter: 2007Q2

REPORT INFORMATION
  Report Type: 
  Country: None (occurrence: None)
  Receive Date: 20070518
  Receipt Date: 20070511
  Transmission Date: 20071010
  Serious: Yes (Hospitalization)
  Sender: FDA-Public Use
  Company Number: JP-BRISTOL-MYERS SQUIBB COMPANY-13756861

PATIENT
  Age: 73 Year
  Sex: Male

DRUGS (12)
  1. SINEMET [Suspect]
     Indication: PARKINSON'S DISEASE
     Dosage: D/C'D 25-MAR-2007; RESTARTED ON 27-MAR-2007
     Route: 048
     Dates: start: 20061101, end: 20070325
  2. TEGRETOL [Suspect]
     Dates: start: 20070320, end: 20070325
  3. BIOFERMIN [Concomitant]
     Dates: end: 20070325
  4. CABASER [Concomitant]
     Dates: end: 20070325
  5. LAXOBERON [Concomitant]
     Dates: end: 20070325
  6. CYANOCOBALAMIN [Concomitant]
     Dates: end: 20070325
  7. MUCOSOLVAN [Concomitant]
     Dates: end: 20070325
  8. MAGNESIUM OXIDE [Concomitant]
     Dates: end: 20070325
  9. TAKEPRON [Concomitant]
     Dates: end: 20070325
  10. FURSULTIAMINE [Concomitant]
     Dates: end: 20070325
  11. PINDOLOL [Concomitant]
     Dates: end: 20070325
  12. ZOLPIDEM TARTRATE [Concomitant]
     Dates: end: 20070325

REACTIONS (2)
  - EOSINOPHIL PERCENTAGE INCREASED [None]
  - ERYTHEMA [None]
